FAERS Safety Report 5115529-0 (Version None)
Quarter: 2006Q3

REPORT INFORMATION
  Report Type: 
  Country: None (occurrence: None)
  Receive Date: 20060927
  Receipt Date: 20060914
  Transmission Date: 20061208
  Serious: Yes (Hospitalization)
  Sender: FDA-Public Use
  Company Number: PHBS2006BR14550

PATIENT
  Age: 38 Year
  Sex: Male

DRUGS (4)
  1. CARBAMAZEPINE [Suspect]
     Indication: TRIGEMINAL NEURALGIA
     Dosage: 600 MG/DAY
     Route: 065
  2. CARBAMAZEPINE [Suspect]
     Dosage: 50 MG/DAY
     Route: 065
  3. AMITRIPTYLINE HCL [Concomitant]
  4. METHYSERGIDE [Concomitant]

REACTIONS (5)
  - DRUG INEFFECTIVE [None]
  - DRUG INTOLERANCE [None]
  - HYPOPHYSECTOMY [None]
  - PITUITARY TUMOUR BENIGN [None]
  - SOMNOLENCE [None]
